FAERS Safety Report 24095001 (Version 2)
Quarter: 2024Q3

REPORT INFORMATION
  Report Type: Report from Study
  Country: US (occurrence: US)
  Receive Date: 20240716
  Receipt Date: 20240722
  Transmission Date: 20241016
  Serious: Yes (Other)
  Sender: CSL BEHRING
  Company Number: US-BEH-2024175702

PATIENT
  Age: 28 Year
  Sex: Female
  Weight: 59.3 kg

DRUGS (1)
  1. BERINERT [Suspect]
     Active Substance: HUMAN C1-ESTERASE INHIBITOR
     Dosage: 3600 IU/KG, BIW
     Route: 058

REACTIONS (1)
  - Maternal exposure during pregnancy [Unknown]
